FAERS Safety Report 9656582 (Version 1)
Quarter: 2013Q4

REPORT INFORMATION
  Report Type: Spontaneous
  Country: US (occurrence: US)
  Receive Date: 20131030
  Receipt Date: 20131030
  Transmission Date: 20140711
  Serious: No
  Sender: FDA-Public Use
  Company Number: US-GLAXOSMITHKLINE-A1012672A

PATIENT
  Age: 71 Year
  Sex: Female

DRUGS (16)
  1. SEREVENT [Suspect]
     Indication: ASTHMA
     Dosage: 1PUFF TWICE PER DAY
     Route: 055
     Dates: start: 20130213
  2. QVAR [Concomitant]
  3. CRESTOR [Concomitant]
  4. AZELASTINE HYDROCHLORIDE [Concomitant]
  5. ATENOLOL [Concomitant]
  6. EXFORGE [Concomitant]
  7. SINGULAIR [Concomitant]
  8. FENOFIBRATE [Concomitant]
  9. POTASSIUM [Concomitant]
  10. ULTRAM [Concomitant]
  11. LASIX [Concomitant]
  12. ZYRTEC [Concomitant]
  13. CALCIUM [Concomitant]
  14. VITAMIN D [Concomitant]
  15. PANTOPRAZOLE [Concomitant]
  16. MULTI VITAMINS [Concomitant]

REACTIONS (2)
  - Headache [Not Recovered/Not Resolved]
  - Migraine [Unknown]
